FAERS Safety Report 15384940 (Version 2)
Quarter: 2018Q3

REPORT INFORMATION
  Report Type: Spontaneous
  Country: US (occurrence: US)
  Receive Date: 20180914
  Receipt Date: 20180919
  Transmission Date: 20181010
  Serious: No
  Sender: FDA-Public Use
  Company Number: US-PFIZER INC-2018369337

PATIENT
  Sex: Female

DRUGS (1)
  1. PREMARIN [Suspect]
     Active Substance: ESTROGENS, CONJUGATED
     Dosage: 0.625

REACTIONS (5)
  - Vulvovaginal pruritus [Unknown]
  - Urinary tract infection [Unknown]
  - Cystitis [Unknown]
  - Reaction to excipient [Unknown]
  - Vulvovaginal discomfort [Unknown]
